FAERS Safety Report 8818867 (Version 1)
Quarter: 2012Q4

REPORT INFORMATION
  Report Type: 
  Country: US (occurrence: US)
  Receive Date: 20121001
  Receipt Date: 20121001
  Transmission Date: 20130627
  Serious: Yes (Other)
  Sender: FDA-Public Use
  Company Number: US-ABBOTT-12P-163-0988316-00

PATIENT
  Age: 35 None
  Sex: Female
  Weight: 76.27 kg

DRUGS (1)
  1. SYNTHROID [Suspect]
     Indication: PRODUCT USED FOR UNKNOWN INDICATION
     Dates: start: 200803, end: 201204

REACTIONS (5)
  - Abortion spontaneous [Unknown]
  - Vaginal haemorrhage [Unknown]
  - Feeling abnormal [Recovered/Resolved]
  - Sluggishness [Recovered/Resolved]
  - Blood thyroid stimulating hormone increased [Not Recovered/Not Resolved]
